FAERS Safety Report 22351239 (Version 5)
Quarter: 2023Q4

REPORT INFORMATION
  Report Type: Spontaneous
  Country: US (occurrence: US)
  Receive Date: 20230522
  Receipt Date: 20231229
  Transmission Date: 20240110
  Serious: Yes (Hospitalization, Other)
  Sender: FDA-Public Use
  Company Number: US-Stemline Therapeutics, Inc.-2023ST000441

PATIENT
  Age: 45 Year
  Sex: Female

DRUGS (6)
  1. ORSERDU [Suspect]
     Active Substance: ELACESTRANT
     Indication: Product used for unknown indication
     Route: 048
     Dates: start: 20230317
  2. XANAX [Concomitant]
     Active Substance: ALPRAZOLAM
     Indication: Panic attack
  3. ZOLOFT [Concomitant]
     Active Substance: SERTRALINE HYDROCHLORIDE
     Indication: Product used for unknown indication
     Route: 065
  4. PROZAC [Concomitant]
     Active Substance: FLUOXETINE HYDROCHLORIDE
     Indication: Product used for unknown indication
     Route: 065
  5. VAGIFEM [Concomitant]
     Active Substance: ESTRADIOL
     Indication: Product used for unknown indication
     Route: 065
  6. LASIX [Concomitant]
     Active Substance: FUROSEMIDE
     Indication: Product used for unknown indication
     Route: 065

REACTIONS (28)
  - Cellulitis [Unknown]
  - Sepsis [Unknown]
  - Ankle fracture [Not Recovered/Not Resolved]
  - Radiation oesophagitis [Unknown]
  - Feeling abnormal [Not Recovered/Not Resolved]
  - Food craving [Unknown]
  - Hypogeusia [Unknown]
  - Dysphagia [Recovered/Resolved]
  - Lymphoedema [Unknown]
  - Weight increased [Recovering/Resolving]
  - Hypotension [Unknown]
  - Malaise [Unknown]
  - Dysgeusia [Unknown]
  - Urinary incontinence [Unknown]
  - Pain [Unknown]
  - Product dose omission issue [Unknown]
  - Skin disorder [Not Recovered/Not Resolved]
  - Swelling [Not Recovered/Not Resolved]
  - Hot flush [Unknown]
  - Bone pain [Recovering/Resolving]
  - Myalgia [Unknown]
  - Fatigue [Recovering/Resolving]
  - Decreased appetite [Recovered/Resolved]
  - Dyspepsia [Recovered/Resolved]
  - Vomiting [Recovered/Resolved]
  - Nausea [Unknown]
  - Headache [Not Recovered/Not Resolved]
  - Blood cholesterol increased [Unknown]
